FAERS Safety Report 5444664-2 (Version None)
Quarter: 2007Q3

REPORT INFORMATION
  Report Type: 
  Country: None (occurrence: None)
  Receive Date: 20070906
  Receipt Date: 20070123
  Transmission Date: 20080115
  Serious: No
  Sender: FDA-Public Use
  Company Number: A0636706A

PATIENT
  Age: 59 Year
  Sex: Female

DRUGS (7)
  1. REQUIP [Suspect]
     Indication: RESTLESS LEGS SYNDROME
     Dosage: 3MG TWICE PER DAY
     Route: 048
     Dates: start: 20061001
  2. PRILOSEC [Concomitant]
  3. EFFEXOR [Concomitant]
  4. LISINOPRIL [Concomitant]
  5. NAPROXEN [Concomitant]
  6. ACETAMINOPHEN [Concomitant]
  7. LORATADINE [Concomitant]

REACTIONS (3)
  - NAUSEA [None]
  - RHINORRHOEA [None]
  - VOMITING [None]
